FAERS Safety Report 6540473-1 (Version None)
Quarter: 2010Q1

REPORT INFORMATION
  Report Type: 
  Country: None (occurrence: None)
  Receive Date: 20100113
  Receipt Date: 20100104
  Transmission Date: 20100710
  Serious: Yes (Hospitalization)
  Sender: FDA-Public Use
  Company Number: 1000011210

PATIENT
  Age: 53 Year
  Sex: Male

DRUGS (3)
  1. ESCITALOPRAM [Suspect]
     Dosage: ORAL
     Route: 048
     Dates: start: 20090915, end: 20090923
  2. CIPROFLOXACIN HCL [Suspect]
     Indication: SEPSIS
     Dosage: INTRAVENOUS (NOT OTHERWISE SPECIFIED)
     Route: 042
     Dates: start: 20090919, end: 20090923
  3. RIFATER [Suspect]
     Indication: TUBERCULOSIS
     Dosage: ORAL
     Route: 048
     Dates: start: 20090909, end: 20090923

REACTIONS (3)
  - ALCOHOL USE [None]
  - SEPSIS [None]
  - TONIC CLONIC MOVEMENTS [None]
